FAERS Safety Report 17491070 (Version 1)
Quarter: 2020Q1

REPORT INFORMATION
  Report Type: Report from Study
  Country: US (occurrence: US)
  Receive Date: 20200304
  Receipt Date: 20200304
  Transmission Date: 20200409
  Serious: Yes (Other)
  Sender: FDA-Public Use
  Company Number: US-TEVA-2020-US-1194224

PATIENT
  Sex: Female

DRUGS (1)
  1. CLARAVIS [Suspect]
     Active Substance: ISOTRETINOIN
     Dosage: THE SUSPECT MEDICATION WAS TAKEN BY FATHER
     Route: 065
     Dates: start: 20190529, end: 20190628

REACTIONS (2)
  - Unintended pregnancy [Unknown]
  - Paternal exposure timing unspecified [Unknown]
